FAERS Safety Report 4391855-8 (Version None)
Quarter: 2004Q3

REPORT INFORMATION
  Report Type: 
  Country: None (occurrence: None)
  Receive Date: 20040702
  Receipt Date: 20040426
  Transmission Date: 20050211
  Serious: Yes (Hospitalization)
  Sender: FDA-Public Use
  Company Number: 2004UW08456

PATIENT
  Age: 76 Year
  Sex: Female
  Weight: 46.2669 kg

DRUGS (4)
  1. CRESTOR [Suspect]
     Indication: BLOOD CHOLESTEROL INCREASED
     Dosage: 10 MG PO
     Route: 048
     Dates: start: 20031103, end: 20031208
  2. SYNTHROID [Concomitant]
  3. ALPRAZOLAM [Concomitant]
  4. ASPIRIN [Concomitant]

REACTIONS (4)
  - BRONCHITIS [None]
  - COUGH [None]
  - LOSS OF CONSCIOUSNESS [None]
  - PNEUMONIA [None]
